FAERS Safety Report 12797934 (Version 1)
Quarter: 2016Q3

REPORT INFORMATION
  Report Type: Spontaneous
  Country: US (occurrence: US)
  Receive Date: 20160930
  Receipt Date: 20160930
  Transmission Date: 20161109
  Serious: Yes (Other)
  Sender: FDA-Public Use
  Company Number: US-GLAXOSMITHKLINE-US2016141623

PATIENT
  Age: 72 Year
  Sex: Male

DRUGS (4)
  1. LOSARTAN. [Concomitant]
     Active Substance: LOSARTAN
  2. WARFARIN [Concomitant]
     Active Substance: WARFARIN
  3. ADVAIR HFA [Suspect]
     Active Substance: FLUTICASONE PROPIONATE\SALMETEROL XINAFOATE
     Indication: MULTIPLE ALLERGIES
     Dosage: 2 PUFF(S), BID
     Route: 055
     Dates: start: 201404, end: 20140602
  4. CARVEDILOL. [Concomitant]
     Active Substance: CARVEDILOL

REACTIONS (3)
  - Hypertension [Recovering/Resolving]
  - Cardiac failure congestive [Recovering/Resolving]
  - Aortic aneurysm [Recovering/Resolving]

NARRATIVE: CASE EVENT DATE: 20140602
